FAERS Safety Report 9337494 (Version 1)
Quarter: 2013Q2

REPORT INFORMATION
  Report Type: Spontaneous
  Country: GR (occurrence: GR)
  Receive Date: 20130607
  Receipt Date: 20130607
  Transmission Date: 20140414
  Serious: Yes (Other)
  Sender: FDA-Public Use
  Company Number: GR-TEVA-410508USA

PATIENT
  Sex: Female

DRUGS (1)
  1. POSTINOR UNO [Suspect]
     Indication: PRODUCT USED FOR UNKNOWN INDICATION
     Route: 048
     Dates: start: 20130512, end: 20130512

REACTIONS (2)
  - Intestinal haemorrhage [Unknown]
  - Abdominal pain upper [Unknown]
